FAERS Safety Report 10057119 (Version 2)
Quarter: 2014Q2

REPORT INFORMATION
  Report Type: Report from Study
  Country: HK (occurrence: HK)
  Receive Date: 20140403
  Receipt Date: 20140403
  Transmission Date: 20141212
  Serious: Yes (Death, Hospitalization)
  Sender: FDA-Public Use
  Company Number: HK-B.I. PHARMACEUTICALS,INC./RIDGEFIELD-2014-BI-13040HK

PATIENT
  Age: 60 Year
  Sex: Male
  Weight: 51.4 kg

DRUGS (5)
  1. AFATINIB [Suspect]
     Indication: NON-SMALL CELL LUNG CANCER
     Dosage: 50 MG
     Route: 048
     Dates: start: 20140212, end: 20140224
  2. AFATINIB [Suspect]
     Dosage: 40 MG
     Route: 048
     Dates: start: 20140225, end: 20140322
  3. MORPHINE SULPHATE [Concomitant]
     Indication: ANALGESIC THERAPY
     Dosage: 40 MG
     Route: 048
     Dates: start: 20140322, end: 20140325
  4. PARACETAMOL [Concomitant]
     Indication: ANALGESIC THERAPY
     Dosage: 2000 MG
     Route: 048
     Dates: start: 20140322, end: 20140325
  5. PANTOPRAZOLE [Concomitant]
     Indication: GASTROOESOPHAGEAL REFLUX PROPHYLAXIS
     Dosage: 40 MG
     Route: 050
     Dates: start: 20140325, end: 20140325

REACTIONS (3)
  - Malignant neoplasm progression [Fatal]
  - Dyspnoea [Unknown]
  - Cough [Unknown]
